FAERS Safety Report 22160139 (Version 1)
Quarter: 2023Q1

REPORT INFORMATION
  Report Type: Report from Study
  Country: US (occurrence: US)
  Receive Date: 20230331
  Receipt Date: 20230331
  Transmission Date: 20230417
  Serious: Yes (Other)
  Sender: FDA-Public Use
  Company Number: US-Indoco-000401

PATIENT
  Sex: Male

DRUGS (1)
  1. APIXABAN [Suspect]
     Active Substance: APIXABAN
     Indication: Thrombosis prophylaxis
     Dosage: APIXABAN 0.07 MG/KG/DOSE (1.25 MG TWICE DAILY).

REACTIONS (3)
  - Empyema [Unknown]
  - Haemoptysis [Unknown]
  - Circulatory collapse [Unknown]
